FAERS Safety Report 9376114 (Version 2)
Quarter: 2014Q1

REPORT INFORMATION
  Report Type: Spontaneous
  Country: US (occurrence: US)
  Receive Date: 20130630
  Receipt Date: 20140321
  Transmission Date: 20141002
  Serious: No
  Sender: FDA-Public Use
  Company Number: US-ASTRAZENECA-2013SE40653

PATIENT
  Age: 74 Year
  Sex: Female
  Weight: 108.9 kg

DRUGS (17)
  1. TOPROL XL [Suspect]
     Indication: HYPERTENSION
     Route: 048
  2. LISINOPRIL HCT [Suspect]
     Dosage: TWO TIMED DAILY
     Route: 048
  3. CRILL OIL [Concomitant]
  4. VIT C [Concomitant]
  5. FISH OIL [Concomitant]
     Dosage: DAILY
  6. ALBUTEROL [Concomitant]
  7. IPOTROPIUM BROMIDE [Concomitant]
  8. JANUMET XR [Concomitant]
     Indication: DIABETES MELLITUS
  9. LANTACE [Concomitant]
  10. LUMIGAN [Concomitant]
     Indication: GLAUCOMA
  11. ASA [Concomitant]
  12. CRANBERRY GEL [Concomitant]
  13. IRON [Concomitant]
  14. FLAX SEED [Concomitant]
  15. FOSAMAX [Concomitant]
     Indication: OSTEOPOROSIS
  16. FUROSEMIDE [Concomitant]
  17. GARLIC [Concomitant]

REACTIONS (7)
  - Hypertension [Unknown]
  - Peripheral arterial occlusive disease [Unknown]
  - Arteriosclerosis [Unknown]
  - Musculoskeletal pain [Not Recovered/Not Resolved]
  - Erythema [Unknown]
  - Burning sensation [Unknown]
  - Drug effect decreased [Unknown]
